FAERS Safety Report 10766617 (Version 3)
Quarter: 2015Q1

REPORT INFORMATION
  Report Type: Report from Study
  Country: US (occurrence: US)
  Receive Date: 20150205
  Receipt Date: 20150219
  Transmission Date: 20150721
  Serious: Yes (Hospitalization, Other)
  Sender: FDA-Public Use
  Company Number: PHEH2015US001723

PATIENT
  Sex: Female

DRUGS (1)
  1. GILENYA [Suspect]
     Active Substance: FINGOLIMOD HYDROCHLORIDE
     Indication: MULTIPLE SCLEROSIS
     Dosage: 0.5 MG, QD
     Route: 048
     Dates: start: 20070207

REACTIONS (7)
  - Stress [Unknown]
  - Kidney infection [Unknown]
  - Dehydration [Unknown]
  - Serum ferritin increased [Unknown]
  - Nausea [Unknown]
  - Sinusitis [Unknown]
  - Upper respiratory tract infection [Unknown]
